FAERS Safety Report 8351576-3 (Version None)
Quarter: 2012Q2

REPORT INFORMATION
  Report Type: 
  Country: None (occurrence: None)
  Receive Date: 20120511
  Receipt Date: 20120327
  Transmission Date: 20120825
  Serious: Yes (Death)
  Sender: FDA-Public Use
  Company Number: US-BIOGENIDEC-2012BI008695

PATIENT
  Sex: Female

DRUGS (1)
  1. AVONEX [Suspect]
     Indication: TROPICAL SPASTIC PARESIS
     Route: 030
     Dates: start: 20060213, end: 20060427

REACTIONS (1)
  - DEATH [None]
